FAERS Safety Report 7738096-1 (Version None)
Quarter: 2011Q3

REPORT INFORMATION
  Report Type: 
  Country: None (occurrence: None)
  Receive Date: 20110908
  Receipt Date: 20110829
  Transmission Date: 20111222
  Serious: Yes (Death)
  Sender: FDA-Public Use
  Company Number: CR-PFIZER INC-2011197831

PATIENT
  Age: 80 Year
  Sex: Female

DRUGS (4)
  1. PANTOPRAZOLE [Suspect]
     Indication: GASTRIC ULCER HAEMORRHAGE
     Dosage: 40 MG, 1X/DAY
     Route: 048
  2. IRBESARTAN [Concomitant]
     Dosage: UNK
  3. COREG [Concomitant]
     Dosage: UNK
  4. GLISULIN [Concomitant]
     Dosage: UNK

REACTIONS (1)
  - DEATH [None]
